FAERS Safety Report 8870137 (Version 1)
Quarter: 2012Q4

REPORT INFORMATION
  Report Type: 
  Country: FR (occurrence: FR)
  Receive Date: 20121028
  Receipt Date: 20121028
  Transmission Date: 20130627
  Serious: Yes (Other)
  Sender: FDA-Public Use
  Company Number: FR-MYLANLABS-2012S1021644

PATIENT
  Age: 11 Year
  Sex: Male
  Weight: 72 kg

DRUGS (8)
  1. JOSAMYCIN [Suspect]
     Indication: EAR INFECTION
     Route: 065
  2. TACROLIMUS [Interacting]
     Indication: NEPHROTIC SYNDROME
     Dosage: 8 mg/day
     Route: 065
  3. PROPRANOLOL [Concomitant]
     Dosage: 160 mg/day
     Route: 065
  4. PREDNISONE [Concomitant]
     Dosage: 60 mg/day
     Route: 065
  5. ESOMEPRAZOLE [Concomitant]
     Dosage: 10 mg/day
     Route: 065
  6. CALCIUM [Concomitant]
     Dosage: 500 mg/day
     Route: 065
  7. COLECALCIFEROL [Concomitant]
     Dosage: 400 IU/day
     Route: 065
  8. SPIRONOLACTONE [Concomitant]
     Dosage: 50 mg/day
     Route: 065

REACTIONS (7)
  - Overdose [Recovered/Resolved]
  - Inhibitory drug interaction [Recovered/Resolved]
  - Drug level above therapeutic [Recovered/Resolved]
  - Status epilepticus [Recovered/Resolved]
  - Posterior reversible encephalopathy syndrome [Recovered/Resolved]
  - Renal failure acute [Recovering/Resolving]
  - Acute pulmonary oedema [Unknown]
